FAERS Safety Report 10077301 (Version 2)
Quarter: 2014Q2

REPORT INFORMATION
  Report Type: Spontaneous
  Country: US (occurrence: US)
  Receive Date: 20140414
  Receipt Date: 20140414
  Transmission Date: 20141212
  Serious: No
  Sender: FDA-Public Use
  Company Number: US-BANPHARM-20131285

PATIENT
  Age: 87 Year
  Sex: Female
  Weight: 54.43 kg

DRUGS (2)
  1. ALEVE LIQUID GELS 220 MG [Suspect]
     Indication: ARTHRITIS
     Dosage: 1 DF, ONCE,
     Route: 048
     Dates: start: 20130430, end: 20130430
  2. ALEVE CAPLETS [Suspect]

REACTIONS (2)
  - Foreign body [Recovered/Resolved]
  - Product size issue [Unknown]
